FAERS Safety Report 17307283 (Version 1)
Quarter: 2020Q1

REPORT INFORMATION
  Report Type: Spontaneous
  Country: US (occurrence: US)
  Receive Date: 20200122
  Receipt Date: 20200122
  Transmission Date: 20200409
  Serious: Yes (Life-Threatening, Hospitalization, Disabling)
  Sender: FDA-Public Use
  Company Number: None

PATIENT
  Age: 33 Year
  Sex: Female
  Weight: 76.5 kg

DRUGS (26)
  1. RESVERATROL [Concomitant]
     Active Substance: DIETARY SUPPLEMENT\RESVERATROL
  2. MUSHROOM [Concomitant]
     Active Substance: CULTIVATED MUSHROOM
  3. CBD OIL [Concomitant]
     Active Substance: CANNABIDIOL\HERBALS
  4. SEROQUEL [Concomitant]
     Active Substance: QUETIAPINE FUMARATE
  5. ALLEGRA [Concomitant]
     Active Substance: FEXOFENADINE HYDROCHLORIDE
  6. ADVAIR HFA [Concomitant]
     Active Substance: FLUTICASONE PROPIONATE\SALMETEROL XINAFOATE
  7. B12 COMPLEX DROPS [Concomitant]
  8. POTASSIUM [Concomitant]
     Active Substance: POTASSIUM
  9. ZINC. [Concomitant]
     Active Substance: ZINC
  10. LEMON HONEY MOTHERS APPLE CIDER VINEGAR DRINKS [Concomitant]
  11. NATURAL HONEY [Concomitant]
  12. CITALOPRAM [Concomitant]
     Active Substance: CITALOPRAM HYDROBROMIDE
  13. ALBUTEROL RESCUE INHALER [Concomitant]
  14. VITAMIN D [Concomitant]
     Active Substance: VITAMIN D NOS
  15. DANDELION DETOX [Concomitant]
  16. FISH OIL [Concomitant]
     Active Substance: FISH OIL
  17. TOPAMAX [Concomitant]
     Active Substance: TOPIRAMATE
  18. CHAMOMILE AND GREEN TEAS [Concomitant]
  19. LYRICA [Suspect]
     Active Substance: PREGABALIN
     Indication: FIBROMYALGIA
     Dosage: ?          QUANTITY:1 TABLET(S);?
     Route: 048
  20. VISTARIL [Concomitant]
     Active Substance: HYDROXYZINE PAMOATE
  21. ANORO ELLIPTA [Concomitant]
     Active Substance: UMECLIDINIUM BROMIDE\VILANTEROL TRIFENATATE
  22. MAGNESIUM [Concomitant]
     Active Substance: MAGNESIUM
  23. ADRENALS [Concomitant]
  24. MONTELUKAST [Concomitant]
     Active Substance: MONTELUKAST SODIUM
  25. ALBUTEROL BREATHING TREATMENT [Concomitant]
  26. COMPLETE VITAMIN [Concomitant]

REACTIONS (2)
  - Asthma [None]
  - Condition aggravated [None]

NARRATIVE: CASE EVENT DATE: 20181224
